FAERS Safety Report 8134333-2 (Version None)
Quarter: 2012Q1

REPORT INFORMATION
  Report Type: 
  Country: None (occurrence: None)
  Receive Date: 20120210
  Receipt Date: 20120124
  Transmission Date: 20120608
  Serious: Yes (Death, Other)
  Sender: FDA-Public Use
  Company Number: FK201103002

PATIENT
  Age: 62 Year
  Sex: Male

DRUGS (11)
  1. METHOTREXATE [Suspect]
     Indication: RHEUMATOID ARTHRITIS
     Dates: start: 19991201, end: 20030601
  2. METHOTREXATE [Suspect]
     Indication: RHEUMATOID ARTHRITIS
     Dates: start: 20050901, end: 20070601
  3. RISEDRONATE (RISEDRONATE SODIUM) (RISEDRONATE SODIUM) [Concomitant]
  4. OMEPRAZOLE [Concomitant]
  5. CALCICHEW D3 (LEKOVIT CA) (LEKOVIT CA) [Concomitant]
  6. PROPRANOLOL [Concomitant]
  7. HYDROCORTISONE [Concomitant]
  8. LACTULOSE (LACTULOSE) (LACTULOSE) [Concomitant]
  9. SPIRONOLACTONE [Concomitant]
  10. FERROUS FUMARATE (FERROUS FUMARATE) (FERROUS FUMARATE) [Concomitant]
  11. HYDROXYCHLOROQUINE (HYDROXYCHLOROQUINE) (HYDROXYCHLOROQUINE) [Concomitant]

REACTIONS (3)
  - LIVER FUNCTION TEST ABNORMAL [None]
  - NODULAR REGENERATIVE HYPERPLASIA [None]
  - SEPSIS [None]
